FAERS Safety Report 4537490-X (Version None)
Quarter: 2004Q4

REPORT INFORMATION
  Report Type: 
  Country: None (occurrence: None)
  Receive Date: 20041216
  Receipt Date: 20031210
  Transmission Date: 20050328
  Serious: Yes (Other)
  Sender: FDA-Public Use
  Company Number: HQWYE538011DEC03

PATIENT
  Age: 18 Year
  Sex: Female
  Weight: 87.17 kg

DRUGS (6)
  1. EFFEXOR XR [Suspect]
     Indication: DEPRESSION
     Dosage: 75 MG 1X PER 1 DAY, ORAL
     Route: 048
     Dates: start: 20031116
  2. DEPAKOTE [Concomitant]
  3. LITHIUM (LITHIUM) [Concomitant]
  4. TRAZODONE (TRAZODONE) [Concomitant]
  5. CONCERTA (METHYLPHENIDATE) [Concomitant]
  6. ORTHO TRI-CYCLEN [Concomitant]

REACTIONS (2)
  - FEELING ABNORMAL [None]
  - HEART RATE INCREASED [None]
